FAERS Safety Report 18638728 (Version 14)
Quarter: 2023Q2

REPORT INFORMATION
  Report Type: Report from Study
  Country: US (occurrence: US)
  Receive Date: 20201219
  Receipt Date: 20230518
  Transmission Date: 20230722
  Serious: Yes (Other)
  Sender: FDA-Public Use
  Company Number: NVSC2020US337573

PATIENT
  Age: 37 Year
  Sex: Female

DRUGS (4)
  1. COSENTYX [Suspect]
     Active Substance: SECUKINUMAB
     Indication: Psoriasis
     Dosage: 300 MG, QMO (EVERY 4 WEEKS)
     Route: 058
  2. COSENTYX [Suspect]
     Active Substance: SECUKINUMAB
     Dosage: 300 MG, QMO
     Route: 058
     Dates: start: 202010
  3. COSENTYX [Suspect]
     Active Substance: SECUKINUMAB
     Dosage: 300 MG, QW
     Route: 058
     Dates: start: 20201201, end: 20201215
  4. COSENTYX [Suspect]
     Active Substance: SECUKINUMAB
     Dosage: 300 MG, QMO
     Route: 058
     Dates: start: 202108, end: 202108

REACTIONS (6)
  - Psoriatic arthropathy [Unknown]
  - Influenza [Unknown]
  - Psoriasis [Not Recovered/Not Resolved]
  - Hypersensitivity [Recovered/Resolved]
  - Rash [Unknown]
  - Product supply issue [Unknown]

NARRATIVE: CASE EVENT DATE: 20201208
